FAERS Safety Report 4564294-4 (Version None)
Quarter: 2005Q1

REPORT INFORMATION
  Report Type: 
  Country: None (occurrence: None)
  Receive Date: 20050126
  Receipt Date: 20050111
  Transmission Date: 20050727
  Serious: Yes (Hospitalization)
  Sender: FDA-Public Use
  Company Number: DE_041214985

PATIENT
  Age: 75 Year
  Sex: Female

DRUGS (8)
  1. FORTEO [Suspect]
     Indication: OSTEOPOROSIS
     Dosage: 20 UG DAY
     Dates: start: 20031201
  2. PREDNISONE TAB [Concomitant]
  3. NEXIUM [Concomitant]
  4. METHOTREXAT (METHOTREXATE FARMOS) [Concomitant]
  5. PANTOZOL (PANTOPRAZOLE SODIUM) [Concomitant]
  6. CALCIUM GLUCONATE [Concomitant]
  7. VITAMIN D3 [Concomitant]
  8. TORSEMIDE [Concomitant]

REACTIONS (3)
  - DERMATOMYOSITIS [None]
  - DIZZINESS [None]
  - WEIGHT DECREASED [None]
